FAERS Safety Report 10164720 (Version 1)
Quarter: 2014Q2

REPORT INFORMATION
  Report Type: Spontaneous
  Country: US (occurrence: US)
  Receive Date: 20140510
  Receipt Date: 20140510
  Transmission Date: 20141212
  Serious: No
  Sender: FDA-Public Use
  Company Number: US-BRISTOL-MYERS SQUIBB COMPANY-19505122

PATIENT
  Age: 71 Year
  Sex: Male
  Weight: 79.36 kg

DRUGS (8)
  1. BYETTA PEN DISPOSABLE [Suspect]
     Indication: TYPE 2 DIABETES MELLITUS
     Route: 058
  2. METFORMIN [Concomitant]
  3. CRESTOR [Concomitant]
  4. CLOPIDOGREL BISULFATE [Concomitant]
  5. NORTRIPTYLINE [Concomitant]
  6. ENALAPRIL [Concomitant]
  7. VITAMIN B6 [Concomitant]
  8. NIACIN [Concomitant]

REACTIONS (1)
  - Drug dose omission [Unknown]
